FAERS Safety Report 9059246 (Version 2)
Quarter: 2013Q1

REPORT INFORMATION
  Report Type: Report from Study
  Country: BR (occurrence: BR)
  Receive Date: 20130128
  Receipt Date: 20130128
  Transmission Date: 20140127
  Serious: Yes (Other)
  Sender: FDA-Public Use
  Company Number: BR-ROCHE-1155124

PATIENT
  Sex: Female
  Weight: 84 kg

DRUGS (10)
  1. MABTHERA [Suspect]
     Indication: PRODUCT USED FOR UNKNOWN INDICATION
     Route: 042
     Dates: start: 20120825
  2. METFORMIN [Concomitant]
     Route: 065
  3. HIGROTON [Concomitant]
     Route: 065
  4. SIMVASTATIN [Concomitant]
  5. ENDOFOLIN [Concomitant]
  6. LOSARTAN [Concomitant]
     Route: 065
  7. ZETRON [Concomitant]
  8. DOMPERIDONE [Concomitant]
  9. PANTOPRAZOLE [Concomitant]
  10. SYNTHROID [Concomitant]
     Indication: HYPOTHYROIDISM
     Route: 065

REACTIONS (18)
  - Arthropathy [Not Recovered/Not Resolved]
  - Hypersensitivity [Unknown]
  - Diarrhoea [Not Recovered/Not Resolved]
  - Ear pain [Not Recovered/Not Resolved]
  - Parotid gland enlargement [Not Recovered/Not Resolved]
  - Dry mouth [Recovered/Resolved]
  - Drug ineffective [Not Recovered/Not Resolved]
  - Choking [Not Recovered/Not Resolved]
  - Cough [Not Recovered/Not Resolved]
  - Saliva altered [Recovered/Resolved]
  - Ear pain [Not Recovered/Not Resolved]
  - Cough [Recovered/Resolved]
  - Dry skin [Not Recovered/Not Resolved]
  - Dyspepsia [Not Recovered/Not Resolved]
  - Pain in extremity [Not Recovered/Not Resolved]
  - Local swelling [Not Recovered/Not Resolved]
  - Sjogren^s syndrome [Not Recovered/Not Resolved]
  - Fall [Unknown]
